FAERS Safety Report 9214718 (Version 1)
Quarter: 2013Q1

REPORT INFORMATION
  Report Type: Spontaneous
  Country: US (occurrence: None)
  Receive Date: 20120827
  Receipt Date: 20120827
  Transmission Date: 20140127
  Serious: Yes (Other)
  Sender: FDA-Public Use
  Company Number: 355698

PATIENT
  Age: 56 Year
  Sex: Female
  Weight: 94.8 kg

DRUGS (1)
  1. VICTOZA (LIRAGLUTIDE) SOLUTION FOR INJECTION 6MG/ML [Suspect]
     Indication: TYPE 2 DIABETES MELLITUS
     Route: 058
     Dates: end: 20120630

REACTIONS (3)
  - Anaphylactic reaction [None]
  - Feeling hot [None]
  - Paraesthesia [None]
